FAERS Safety Report 10031573 (Version 1)
Quarter: 2014Q1

REPORT INFORMATION
  Report Type: Spontaneous
  Country: FR (occurrence: FR)
  Receive Date: 20140324
  Receipt Date: 20140324
  Transmission Date: 20141002
  Serious: Yes (Hospitalization)
  Sender: FDA-Public Use
  Company Number: FR-ROCHE-1367509

PATIENT
  Age: 41 Year
  Sex: Female

DRUGS (20)
  1. HERCEPTIN [Suspect]
     Indication: HER-2 POSITIVE BREAST CANCER
     Route: 042
     Dates: start: 20090310
  2. HERCEPTIN [Interacting]
     Route: 042
     Dates: start: 20090401
  3. HERCEPTIN [Interacting]
     Route: 042
     Dates: start: 20090420
  4. HERCEPTIN [Interacting]
     Route: 042
     Dates: start: 20090508, end: 20090525
  5. HERCEPTIN [Interacting]
     Route: 042
     Dates: start: 20090611
  6. BROMAZEPAM [Suspect]
     Indication: PRODUCT USED FOR UNKNOWN INDICATION
     Route: 048
     Dates: end: 200908
  7. DIFFU K [Suspect]
     Indication: PRODUCT USED FOR UNKNOWN INDICATION
     Route: 048
     Dates: end: 200908
  8. LASILIX [Suspect]
     Indication: PRODUCT USED FOR UNKNOWN INDICATION
     Route: 048
     Dates: end: 200908
  9. ATARAX (FRANCE) [Suspect]
     Indication: PRODUCT USED FOR UNKNOWN INDICATION
     Route: 048
     Dates: end: 200908
  10. FLAMMAZINE [Suspect]
     Indication: PRODUCT USED FOR UNKNOWN INDICATION
     Route: 065
     Dates: end: 200908
  11. DEROXAT [Suspect]
     Indication: PRODUCT USED FOR UNKNOWN INDICATION
     Route: 048
     Dates: end: 200908
  12. PACLITAXEL [Interacting]
     Indication: PRODUCT USED FOR UNKNOWN INDICATION
     Route: 065
     Dates: start: 20090518
  13. DOCETAXEL [Suspect]
     Indication: PRODUCT USED FOR UNKNOWN INDICATION
     Route: 065
     Dates: start: 20090310
  14. DOCETAXEL [Suspect]
     Route: 065
     Dates: start: 20090401
  15. DOCETAXEL [Suspect]
     Route: 065
     Dates: start: 20090420
  16. DOCETAXEL [Suspect]
     Route: 065
     Dates: end: 20090518
  17. KEPPRA [Concomitant]
  18. CORTANCYL [Concomitant]
  19. ALDACTONE (FRANCE) [Concomitant]
  20. ZYRTEC [Concomitant]

REACTIONS (1)
  - Photosensitivity reaction [Recovered/Resolved]
